FAERS Safety Report 12582649 (Version 1)
Quarter: 2016Q3

REPORT INFORMATION
  Report Type: Spontaneous
  Country: JP (occurrence: JP)
  Receive Date: 20160722
  Receipt Date: 20160722
  Transmission Date: 20161109
  Serious: Yes (Hospitalization, Other)
  Sender: FDA-Public Use
  Company Number: JP-ROCHE-1799629

PATIENT
  Age: 78 Year
  Sex: Male
  Weight: 70 kg

DRUGS (8)
  1. AVASTIN [Suspect]
     Active Substance: BEVACIZUMAB
     Indication: COLON CANCER
     Route: 041
     Dates: start: 20151209, end: 20151209
  2. 5-FU [Suspect]
     Active Substance: FLUOROURACIL
     Indication: COLON CANCER
     Dosage: DOSE INTERVAL UNCERTAINTY?COMPLETED TREATMENT CYCLE NUMBER: 4
     Route: 040
     Dates: start: 20151028, end: 20151222
  3. DEXART [Concomitant]
     Active Substance: DEXAMETHASONE SODIUM PHOSPHATE
     Dosage: THE FRACTIONATION DOSE FREQUENCY IS UNCERTAIN.
     Route: 065
     Dates: start: 20151028, end: 20151028
  4. ELPLAT [Suspect]
     Active Substance: OXALIPLATIN
     Indication: COLON CANCER
     Dosage: DOSE INTERVAL UNCERTAINTY?COMPLETED TREATMENT CYCLE NUMBER: 4
     Route: 041
     Dates: start: 20151028, end: 20151222
  5. AVASTIN [Suspect]
     Active Substance: BEVACIZUMAB
     Indication: COLON CANCER
     Dosage: TREATMENT LINE: 1
     Route: 041
     Dates: start: 20151028, end: 20151111
  6. 5-FU [Suspect]
     Active Substance: FLUOROURACIL
     Indication: COLON CANCER
     Dosage: DOSE INTERVAL UNCERTAINTY
     Route: 041
     Dates: start: 20151028, end: 20151222
  7. ISOVORIN [Suspect]
     Active Substance: LEUCOVORIN CALCIUM
     Indication: COLON CANCER
     Dosage: DOSE INTERVAL UNCERTAINTY?COMPLETED TREATMENT CYCLE NUMBER: 4
     Route: 041
     Dates: start: 20151028, end: 20151222
  8. ALOXI [Concomitant]
     Active Substance: PALONOSETRON HYDROCHLORIDE
     Dosage: THE FRACTIONATION DOSE FREQUENCY IS UNCERTAIN.
     Route: 042
     Dates: start: 20151028, end: 20151028

REACTIONS (3)
  - Vasculitis [Unknown]
  - Embolism arterial [Unknown]
  - Splenic infarction [Recovered/Resolved]

NARRATIVE: CASE EVENT DATE: 20151221
